FAERS Safety Report 5294901-2 (Version None)
Quarter: 2007Q2

REPORT INFORMATION
  Report Type: 
  Country: None (occurrence: None)
  Receive Date: 20070412
  Receipt Date: 20070405
  Transmission Date: 20071010
  Serious: Yes (Disabling, Other)
  Sender: FDA-Public Use
  Company Number: 2007AP01830

PATIENT
  Age: 833 Month
  Weight: 75.8 kg

DRUGS (4)
  1. ARIMIDEX [Suspect]
     Indication: BREAST CANCER
     Route: 048
     Dates: start: 20060619, end: 20061211
  2. ATACAND [Concomitant]
     Indication: HYPERTENSION
     Route: 048
  3. ASTRIX [Concomitant]
  4. ZANIDIP [Concomitant]
     Route: 048

REACTIONS (1)
  - RETINAL HAEMORRHAGE [None]
